FAERS Safety Report 4988050-8 (Version None)
Quarter: 2006Q2

REPORT INFORMATION
  Report Type: 
  Country: None (occurrence: None)
  Receive Date: 20060424
  Receipt Date: 20060406
  Transmission Date: 20061013
  Serious: Yes (Death, Other)
  Sender: FDA-Public Use
  Company Number: 2006BH007535

PATIENT
  Age: 32 Week
  Sex: Female

DRUGS (5)
  1. AMPICILLIN [Suspect]
     Indication: MORGANELLA INFECTION
  2. CIPROFLOXACIN HCL [Suspect]
     Indication: MORGANELLA INFECTION
  3. NETILMYCIN [Suspect]
     Indication: MORGANELLA INFECTION
  4. CEFOTAXIME [Concomitant]
  5. AMIKACIN [Concomitant]

REACTIONS (7)
  - DRUG EXPOSURE DURING PREGNANCY [None]
  - GENERAL PHYSICAL HEALTH DETERIORATION [None]
  - METABOLIC ACIDOSIS [None]
  - MORGANELLA INFECTION [None]
  - NEONATAL DISORDER [None]
  - SEPSIS NEONATAL [None]
  - THROMBOCYTOPENIA NEONATAL [None]
